FAERS Safety Report 18640523 (Version 2)
Quarter: 2021Q1

REPORT INFORMATION
  Report Type: Report from Study
  Country: CH (occurrence: CH)
  Receive Date: 20201221
  Receipt Date: 20210303
  Transmission Date: 20210419
  Serious: Yes (Other)
  Sender: FDA-Public Use
  Company Number: CH-ROCHE-2727273

PATIENT
  Age: 69 Year
  Sex: Male
  Weight: 103 kg

DRUGS (2)
  1. RITUXIMAB. [Suspect]
     Active Substance: RITUXIMAB
     Indication: CHRONIC LYMPHOCYTIC LEUKAEMIA
     Dosage: LAST THERAPY BEFORE THE EVENT TOOK PLACE WAS ON 25/APR/2018
     Route: 042
     Dates: start: 20171205
  2. VENETOCLAX. [Suspect]
     Active Substance: VENETOCLAX
     Indication: CHRONIC LYMPHOCYTIC LEUKAEMIA
     Dosage: LAST THERAPY BEFORE THE EVENT TOOK PLACE WAS ON 07/NOV/2018
     Route: 048
     Dates: start: 20171228

REACTIONS (1)
  - Rectal cancer [Recovered/Resolved with Sequelae]

NARRATIVE: CASE EVENT DATE: 20201125
